FAERS Safety Report 7206571-4 (Version None)
Quarter: 2011Q1

REPORT INFORMATION
  Report Type: 
  Country: None (occurrence: None)
  Receive Date: 20110103
  Receipt Date: 20101223
  Transmission Date: 20110831
  Serious: Yes (Hospitalization)
  Sender: FDA-Public Use
  Company Number: PHHO2010US12110

PATIENT
  Sex: Male
  Weight: 123.36 kg

DRUGS (20)
  1. COMPARATOR ENALAPRIL [Suspect]
     Indication: CARDIAC FAILURE
  2. SPIRONOLACTONE [Concomitant]
  3. BLINDED ALISKIREN [Suspect]
     Dosage: CODE NOT BROKEN
     Route: 048
     Dates: start: 20100518, end: 20100723
  4. BLINDED ENALAPRIL [Suspect]
     Dosage: CODE NOT BROKEN
     Route: 048
     Dates: start: 20100518, end: 20100723
  5. TORSEMIDE [Concomitant]
  6. WARFARIN SODIUM [Concomitant]
  7. BLINDED NO TREATMENT RECEIVED [Suspect]
     Dosage: NO TREATMENT
     Dates: start: 20100724, end: 20100728
  8. BLINDED ENALAPRIL [Suspect]
     Dosage: CODE NOT BROKEN
     Route: 048
     Dates: start: 20100729
  9. BLINDED NO TREATMENT RECEIVED [Suspect]
     Dosage: CODE NOT BROKEN
     Route: 048
     Dates: start: 20100729
  10. COUMADIN [Concomitant]
  11. VITAMIN D [Concomitant]
  12. NIASPAN [Concomitant]
  13. BLINDED NO TREATMENT RECEIVED [Suspect]
     Dosage: CODE NOT BROKEN
     Route: 048
     Dates: start: 20100518, end: 20100723
  14. BLINDED ALISKIREN [Suspect]
     Dosage: NO TREATMENT
     Dates: start: 20100724, end: 20100728
  15. BLINDED ENALAPRIL [Suspect]
     Dosage: NO TREATMENT
     Dates: start: 20100724, end: 20100728
  16. ALISKIREN [Suspect]
     Indication: CARDIAC FAILURE
  17. AMIODARONE [Concomitant]
  18. BLINDED ALISKIREN [Suspect]
     Dosage: CODE NOT BROKEN
     Route: 048
     Dates: start: 20100729
  19. CARVEDILOL [Concomitant]
  20. KLOR-CON [Concomitant]

REACTIONS (5)
  - ATRIAL FIBRILLATION [None]
  - CATHETERISATION CARDIAC [None]
  - CARDIAC FAILURE [None]
  - CONCOMITANT DISEASE PROGRESSION [None]
  - CORONARY ARTERY DISEASE [None]
